FAERS Safety Report 16087816 (Version 1)
Quarter: 2019Q1

REPORT INFORMATION
  Report Type: Spontaneous
  Country: US (occurrence: US)
  Receive Date: 20190319
  Receipt Date: 20190319
  Transmission Date: 20190418
  Serious: No
  Sender: FDA-Public Use
  Company Number: US-BIOGEN-2018BI00665717

PATIENT
  Sex: Female

DRUGS (3)
  1. BACLOFEN. [Concomitant]
     Active Substance: BACLOFEN
     Route: 050
  2. TECFIDERA [Suspect]
     Active Substance: DIMETHYL FUMARATE
     Indication: MULTIPLE SCLEROSIS
     Route: 050
     Dates: start: 20181119
  3. TECFIDERA [Suspect]
     Active Substance: DIMETHYL FUMARATE
     Route: 050

REACTIONS (20)
  - Insomnia [Unknown]
  - Memory impairment [Unknown]
  - Back pain [Unknown]
  - Flushing [Not Recovered/Not Resolved]
  - Abdominal pain lower [Recovered/Resolved]
  - Affective disorder [Unknown]
  - Dizziness [Unknown]
  - Asthenia [Not Recovered/Not Resolved]
  - Drug ineffective [Unknown]
  - Chills [Unknown]
  - Haemorrhage [Unknown]
  - Feeling of body temperature change [Not Recovered/Not Resolved]
  - Skin mass [Not Recovered/Not Resolved]
  - White blood cell count decreased [Unknown]
  - Muscle spasms [Not Recovered/Not Resolved]
  - Stress [Unknown]
  - Constipation [Not Recovered/Not Resolved]
  - Headache [Not Recovered/Not Resolved]
  - Nausea [Unknown]
  - Abdominal pain upper [Unknown]

NARRATIVE: CASE EVENT DATE: 2018
